FAERS Safety Report 10079910 (Version 1)
Quarter: 2014Q2

REPORT INFORMATION
  Report Type: Spontaneous
  Country: CH (occurrence: CH)
  Receive Date: 20140415
  Receipt Date: 20140415
  Transmission Date: 20141212
  Serious: Yes (Hospitalization)
  Sender: FDA-Public Use
  Company Number: CH-ACTAVIS-2013-25078

PATIENT
  Age: 82 Year
  Sex: Male

DRUGS (6)
  1. FLOXAPEN [Suspect]
     Indication: ENDOCARDITIS
     Dosage: UNK, UNKNOWN
     Route: 048
     Dates: start: 20130115
  2. GENTAMICIN (UNKNOWN) [Suspect]
     Indication: ENDOCARDITIS
     Dosage: UNK, UNKNOWN
     Route: 042
     Dates: start: 20130115
  3. RIMACTAN                           /00146901/ [Suspect]
     Indication: ENDOCARDITIS
     Dosage: 450 MG, QAM/QPM
     Route: 048
     Dates: start: 20130115
  4. CEFEPIM [Suspect]
     Indication: ENDOCARDITIS
     Dosage: UNK, UNKNOWN
     Route: 042
     Dates: start: 20130115, end: 20130116
  5. VANCOMYCIN [Concomitant]
     Indication: ENDOCARDITIS
     Dosage: UNK, UNKNOWN
     Route: 042
     Dates: start: 20130115, end: 20130117
  6. PROPOFOL [Concomitant]
     Indication: ANAESTHESIA
     Dosage: SHORT TERM
     Route: 055
     Dates: start: 20130117

REACTIONS (1)
  - Hyperbilirubinaemia [Recovering/Resolving]
